FAERS Safety Report 10070181 (Version 2)
Quarter: 2014Q2

REPORT INFORMATION
  Report Type: Spontaneous
  Country: FR (occurrence: FR)
  Receive Date: 20140410
  Receipt Date: 20140414
  Transmission Date: 20141212
  Serious: Yes (Other)
  Sender: FDA-Public Use
  Company Number: FR-SA-2014SA039512

PATIENT
  Age: 61 Year
  Sex: Male

DRUGS (2)
  1. RIFADINE [Suspect]
     Indication: PRODUCT USED FOR UNKNOWN INDICATION
     Dosage: DOSE:2 UNIT(S)
     Route: 048
     Dates: end: 201402
  2. DRUGS FOR TREATMENT OF TUBERCULOSIS [Suspect]
     Indication: PRODUCT USED FOR UNKNOWN INDICATION
     Route: 048
     Dates: end: 201402

REACTIONS (2)
  - Anaemia [Not Recovered/Not Resolved]
  - Neutropenia [Not Recovered/Not Resolved]
